FAERS Safety Report 10526994 (Version 1)
Quarter: 2014Q4

REPORT INFORMATION
  Report Type: Spontaneous
  Country: FR (occurrence: FR)
  Receive Date: 20141020
  Receipt Date: 20141020
  Transmission Date: 20150528
  Serious: Yes (Hospitalization)
  Sender: FDA-Public Use
  Company Number: FR-ROCHE-1476064

PATIENT
  Age: 72 Year
  Sex: Female

DRUGS (15)
  1. INEXIUM [Concomitant]
     Active Substance: ESOMEPRAZOLE
  2. PRIMPERAN [Concomitant]
     Active Substance: METOCLOPRAMIDE HYDROCHLORIDE
  3. NEFOPAM [Concomitant]
     Active Substance: NEFOPAM
  4. MABTHERA [Suspect]
     Active Substance: RITUXIMAB
     Indication: LYMPHOMA
     Route: 042
     Dates: start: 201404, end: 20140805
  5. PARACETAMOL [Concomitant]
     Active Substance: ACETAMINOPHEN
  6. ARACYTINE [Suspect]
     Active Substance: CYTARABINE
     Indication: LYMPHOMA
     Route: 065
     Dates: start: 201404, end: 20140805
  7. OXYNORM [Concomitant]
     Active Substance: OXYCODONE HYDROCHLORIDE
  8. LYSANXIA [Concomitant]
     Active Substance: PRAZEPAM
  9. ENDOXAN [Suspect]
     Active Substance: CYCLOPHOSPHAMIDE
     Indication: LYMPHOMA
     Route: 042
     Dates: start: 201404, end: 20140805
  10. VINCRISTINE SULFATE. [Suspect]
     Active Substance: VINCRISTINE SULFATE
     Indication: LYMPHOMA
     Route: 065
     Dates: start: 201404, end: 20140805
  11. TAHOR [Concomitant]
     Active Substance: ATORVASTATIN CALCIUM
  12. PREDNISONE. [Suspect]
     Active Substance: PREDNISONE
     Indication: LYMPHOMA
     Route: 048
     Dates: start: 201404, end: 20140805
  13. METHOTREXATE [Suspect]
     Active Substance: METHOTREXATE
     Indication: LYMPHOMA
     Route: 065
     Dates: start: 201404, end: 20140805
  14. DOXORUBICIN HYDROCHLORIDE. [Suspect]
     Active Substance: DOXORUBICIN HYDROCHLORIDE
     Indication: LYMPHOMA
     Route: 065
     Dates: start: 201404, end: 20140805
  15. FRAGMINE [Concomitant]
     Active Substance: DALTEPARIN SODIUM

REACTIONS (1)
  - Axonal neuropathy [Not Recovered/Not Resolved]

NARRATIVE: CASE EVENT DATE: 201409
